FAERS Safety Report 10490819 (Version 1)
Quarter: 2014Q4

REPORT INFORMATION
  Report Type: Spontaneous
  Country: US (occurrence: US)
  Receive Date: 20141002
  Receipt Date: 20141002
  Transmission Date: 20150528
  Serious: No
  Sender: FDA-Public Use
  Company Number: US-GLAXOSMITHKLINE-A1042276A

PATIENT
  Age: 61 Year
  Sex: Female

DRUGS (4)
  1. ADVAIR HFA [Suspect]
     Active Substance: FLUTICASONE PROPIONATE\SALMETEROL XINAFOATE
     Indication: BRONCHITIS
     Dosage: 1PUFF AS REQUIRED
     Route: 055
  2. IBUPROFEN. [Concomitant]
     Active Substance: IBUPROFEN
  3. ANTI-CHOLESTEROL MEDICATION [Concomitant]
     Active Substance: UNSPECIFIED INGREDIENT
  4. NORCO [Concomitant]
     Active Substance: ACETAMINOPHEN\HYDROCODONE BITARTRATE

REACTIONS (8)
  - Drug administration error [Unknown]
  - Product quality issue [Unknown]
  - Condition aggravated [Unknown]
  - Drug ineffective [Unknown]
  - Ligament sprain [Unknown]
  - Off label use [Unknown]
  - Wheezing [Not Recovered/Not Resolved]
  - Ankle fracture [Unknown]

NARRATIVE: CASE EVENT DATE: 20130918
